FAERS Safety Report 9033924 (Version 1)
Quarter: 2013Q1

REPORT INFORMATION
  Report Type: Spontaneous
  Country: US (occurrence: US)
  Receive Date: 20130128
  Receipt Date: 20130128
  Transmission Date: 20140127
  Serious: Yes (Death)
  Sender: FDA-Public Use
  Company Number: US-AMGEN-USASP2012068152

PATIENT
  Age: 87 Year
  Sex: Male

DRUGS (17)
  1. ENBREL [Suspect]
     Indication: RHEUMATOID ARTHRITIS
     Dosage: 50 MG, QWK
     Route: 058
     Dates: end: 201206
  2. ALLOPURINOL [Concomitant]
     Dosage: 100 MG, UNK
  3. PLAQUENIL                          /00072602/ [Concomitant]
     Dosage: 200 MG, UNK
  4. METOPROLOL                         /00376902/ [Concomitant]
     Dosage: 50 MG, UNK
  5. OMEPRAZOLE [Concomitant]
     Dosage: 10 MG, UNK
  6. DIGOXIN [Concomitant]
     Dosage: 0.125 MG, UNK
  7. FOLIC ACID [Concomitant]
     Dosage: 1 MG, UNK
  8. FERROUS SULPHATE                   /00023503/ [Concomitant]
     Dosage: 325 MG, UNK
  9. LASIX                              /00032601/ [Concomitant]
     Dosage: 80 MG, UNK
  10. FLOMAX                             /00889901/ [Concomitant]
     Dosage: 0.4 MG, UNK
  11. ZOCOR [Concomitant]
     Dosage: 20 MG, UNK
  12. COUMADIN                           /00014802/ [Concomitant]
     Dosage: 1 MG, UNK
  13. VITAMIN D3 [Concomitant]
     Dosage: 5000 UNIT, UNK
  14. VITAMIN B6 [Concomitant]
     Dosage: 250 MG, UNK
  15. ARANESP [Concomitant]
     Dosage: 25 MUG, UNK
  16. TRAMADOL HCL [Concomitant]
     Dosage: 50 MG, UNK
  17. TYLENOL ARTHRITIS [Concomitant]
     Dosage: 650 MG, UNK

REACTIONS (1)
  - Death [Fatal]
